FAERS Safety Report 5070000-X (Version None)
Quarter: 2006Q3

REPORT INFORMATION
  Report Type: 
  Country: None (occurrence: None)
  Receive Date: 20060714
  Receipt Date: 20060501
  Transmission Date: 20061208
  Serious: No
  Sender: FDA-Public Use
  Company Number: 2006SP001891

PATIENT
  Age: 75 Year
  Sex: Female
  Weight: 73.0291 kg

DRUGS (14)
  1. LUNESTA [Suspect]
     Indication: SLEEP DISORDER
     Dosage: 1 MG; ORAL
     Route: 048
     Dates: start: 20060301, end: 20060401
  2. PROCARDIA [Concomitant]
  3. COZAAR [Concomitant]
  4. TOPROL-XL [Concomitant]
  5. FUROSEMIDE [Concomitant]
  6. ASPIRIN [Concomitant]
  7. ATORVASTATIN CALCIUM [Concomitant]
  8. LEVOXYL [Concomitant]
  9. PREVACID [Concomitant]
  10. ALLEGRA [Concomitant]
  11. MAGNESIUM [Concomitant]
  12. CENTRUM [Concomitant]
  13. INSULIN [Concomitant]
  14. TYLENOL [Concomitant]

REACTIONS (2)
  - DRUG INEFFECTIVE [None]
  - INSOMNIA [None]
